FAERS Safety Report 25405139 (Version 1)
Quarter: 2025Q2

REPORT INFORMATION
  Report Type: Report from Study
  Country: KR (occurrence: KR)
  Receive Date: 20250606
  Receipt Date: 20250606
  Transmission Date: 20250717
  Serious: Yes (Hospitalization, Other)
  Sender: Kenvue
  Company Number: KR-JNJFOC-20220912769

PATIENT

DRUGS (6)
  1. TYLENOL [Suspect]
     Active Substance: ACETAMINOPHEN
     Indication: Headache
     Dosage: 1000 MILLIGRAM, TWICE A DAY
     Route: 065
  2. SELEXIPAG [Suspect]
     Active Substance: SELEXIPAG
     Indication: Pulmonary arterial hypertension
     Route: 048
     Dates: start: 2017
  3. SELEXIPAG [Suspect]
     Active Substance: SELEXIPAG
     Dosage: 400 MICROGRAM, TWICE A DAY
     Route: 048
  4. SELEXIPAG [Suspect]
     Active Substance: SELEXIPAG
     Dosage: 800 MICROGRAM, TWICE A DAY
     Route: 048
  5. MACITENTAN [Suspect]
     Active Substance: MACITENTAN
     Indication: Pulmonary arterial hypertension
     Route: 048
     Dates: start: 2014
  6. OXYGEN [Suspect]
     Active Substance: OXYGEN
     Indication: Oxygen saturation decreased
     Route: 055

REACTIONS (44)
  - Oxygen saturation decreased [Not Recovered/Not Resolved]
  - Catheterisation cardiac [Unknown]
  - Pain [Unknown]
  - Diarrhoea [Not Recovered/Not Resolved]
  - Feeling hot [Unknown]
  - Facial pain [Unknown]
  - Abdominal distension [Unknown]
  - Dyspepsia [Unknown]
  - Abdominal pain upper [Unknown]
  - Intraocular pressure increased [Unknown]
  - Pain in jaw [Not Recovered/Not Resolved]
  - Toothache [Unknown]
  - Headache [Not Recovered/Not Resolved]
  - Pulmonary arterial pressure increased [Unknown]
  - Nasal dryness [Unknown]
  - Dry mouth [Unknown]
  - Epistaxis [Recovered/Resolved]
  - Pain in extremity [Recovering/Resolving]
  - Gait disturbance [Unknown]
  - Bone disorder [Unknown]
  - General physical health deterioration [Unknown]
  - Arthralgia [Unknown]
  - Cough [Recovered/Resolved]
  - Pain in extremity [Recovering/Resolving]
  - Paraesthesia [Unknown]
  - Skin discolouration [Recovering/Resolving]
  - Drug ineffective [Unknown]
  - Dyspepsia [Unknown]
  - Fatigue [Not Recovered/Not Resolved]
  - Gingival disorder [Unknown]
  - Nasopharyngitis [Unknown]
  - Ear discomfort [Unknown]
  - Tinnitus [Recovering/Resolving]
  - Hypoacusis [Unknown]
  - Dyspnoea [Not Recovered/Not Resolved]
  - Chest pain [Unknown]
  - Weight fluctuation [Unknown]
  - Productive cough [Recovered/Resolved]
  - Tinnitus [Not Recovered/Not Resolved]
  - Product dose omission issue [Unknown]
  - Dizziness [Unknown]
  - Lip swelling [Recovering/Resolving]
  - Anaemia [Unknown]
  - Lip pruritus [Unknown]

NARRATIVE: CASE EVENT DATE: 20220701
